FAERS Safety Report 18863087 (Version 1)
Quarter: 2021Q1

REPORT INFORMATION
  Report Type: Spontaneous
  Country: US (occurrence: US)
  Receive Date: 20210209
  Receipt Date: 20210209
  Transmission Date: 20210420
  Serious: Yes (Hospitalization)
  Sender: FDA-Public Use
  Company Number: US-CHEPLA-C20210621

PATIENT
  Age: 49 Year
  Sex: Male
  Weight: 71.28 kg

DRUGS (15)
  1. SODIUM CHLORIDE. [Concomitant]
     Active Substance: SODIUM CHLORIDE
     Dosage: 10 ML
  2. OPIUM TINCTURE [Concomitant]
     Active Substance: MORPHINE
     Dosage: 0.6 ML, 10 MG/ML (1%) TINCTURE
  3. ZITHROMAX [Concomitant]
     Active Substance: AZITHROMYCIN DIHYDRATE
     Dosage: 500 MG
  4. MAGNESIUM CARBONATE [Concomitant]
     Active Substance: MAGNESIUM CARBONATE
  5. VALGANCICLOVIR HYDROCHLORIDE. [Suspect]
     Active Substance: VALGANCICLOVIR HYDROCHLORIDE
     Indication: PANCREATIC CARCINOMA
     Dosage: 900 MG, BID, INDUCTION DOSE
  6. PEPCID [Concomitant]
     Active Substance: FAMOTIDINE
     Dosage: 20 MG
  7. ALUMINIUM HYDROXIDE [Concomitant]
     Active Substance: ALUMINUM HYDROXIDE
  8. MERREM [Concomitant]
     Active Substance: MEROPENEM
     Dosage: 2 G, IN NS 100 ML
  9. MORPHINE [Concomitant]
     Active Substance: MORPHINE
     Dosage: 5 MG
  10. XARELTO [Concomitant]
     Active Substance: RIVAROXABAN
     Dosage: 20 MG
  11. LIPASE [Concomitant]
     Active Substance: LIPASE
  12. VITAMIN D3 [Concomitant]
     Active Substance: CHOLECALCIFEROL
     Dosage: 25 UG
  13. COLESTIPOL [Concomitant]
     Active Substance: COLESTIPOL
     Dosage: 1 G
  14. GANCICLOVIR. [Suspect]
     Active Substance: GANCICLOVIR
     Indication: PRODUCT USED FOR UNKNOWN INDICATION
  15. TYLENOL [Concomitant]
     Active Substance: ACETAMINOPHEN
     Dosage: 650 MG

REACTIONS (23)
  - Hepatitis [Unknown]
  - Visual impairment [Unknown]
  - Rhinorrhoea [Unknown]
  - Myalgia [Unknown]
  - Pain [Unknown]
  - Cough [Unknown]
  - Colitis [Unknown]
  - Palpitations [Unknown]
  - Diarrhoea [Unknown]
  - Disseminated cytomegaloviral infection [Unknown]
  - Oropharyngeal pain [Unknown]
  - Dysphagia [Unknown]
  - Campylobacter gastroenteritis [Unknown]
  - Hypoacusis [Unknown]
  - Hypotension [Unknown]
  - Dyspnoea [Unknown]
  - Pyrexia [Unknown]
  - Nausea [Unknown]
  - Vomiting [Unknown]
  - Muscular weakness [Unknown]
  - Tachypnoea [Unknown]
  - Constipation [Unknown]
  - Hypertension [Unknown]

NARRATIVE: CASE EVENT DATE: 20201016
